FAERS Safety Report 4382199-9 (Version None)
Quarter: 2004Q2

REPORT INFORMATION
  Report Type: 
  Country: None (occurrence: None)
  Receive Date: 20040618
  Receipt Date: 20040618
  Transmission Date: 20050107
  Serious: Yes (Other)
  Sender: FDA-Public Use
  Company Number: None

PATIENT
  Age: 57 Year
  Sex: Male
  Weight: 80.7403 kg

DRUGS (1)
  1. TAXUS EXPRESS  PACLITAXEL- ELUTING CORONARY STENT SYSTEM [Suspect]

REACTIONS (2)
  - DEVICE FAILURE [None]
  - MIGRATION OF IMPLANT [None]
